FAERS Safety Report 5843606-5 (Version None)
Quarter: 2008Q3

REPORT INFORMATION
  Report Type: 
  Country: None (occurrence: None)
  Receive Date: 20080813
  Receipt Date: 20080613
  Transmission Date: 20090109
  Serious: No
  Sender: FDA-Public Use
  Company Number: A0732890A

PATIENT
  Age: 84 Year
  Sex: Female

DRUGS (6)
  1. COREG CR [Suspect]
     Indication: HEART RATE INCREASED
     Dosage: 20MG PER DAY
     Route: 048
     Dates: start: 20080501
  2. AVALIDE [Concomitant]
  3. PLAVIX [Concomitant]
  4. REQUIP [Concomitant]
  5. UNKNOWN MEDICATION [Concomitant]
  6. ULTRAM [Concomitant]

REACTIONS (4)
  - DRUG INEFFECTIVE [None]
  - HEADACHE [None]
  - RASH [None]
  - THROAT IRRITATION [None]
